FAERS Safety Report 20206315 (Version 1)
Quarter: 2021Q4

REPORT INFORMATION
  Report Type: Spontaneous
  Country: US (occurrence: US)
  Receive Date: 20211220
  Receipt Date: 20211220
  Transmission Date: 20220303
  Serious: No
  Sender: FDA-Public Use
  Company Number: US-SA-SAC20211213000082

PATIENT
  Age: 18 Year
  Sex: Male

DRUGS (1)
  1. KEVZARA [Suspect]
     Active Substance: SARILUMAB
     Indication: Castleman^s disease
     Dosage: 200MG , FREQUENCY- OTHER
     Route: 058
     Dates: start: 20210112

REACTIONS (1)
  - Off label use [Unknown]
